FAERS Safety Report 14544848 (Version 2)
Quarter: 2018Q1

REPORT INFORMATION
  Report Type: Spontaneous
  Country: FR (occurrence: FR)
  Receive Date: 20180217
  Receipt Date: 20180326
  Transmission Date: 20180509
  Serious: Yes (Hospitalization)
  Sender: FDA-Public Use
  Company Number: FR-MYLANLABS-2018M1010418

PATIENT

DRUGS (3)
  1. ACUPAN [Concomitant]
     Active Substance: NEFOPAM HYDROCHLORIDE
     Indication: PRODUCT USED FOR UNKNOWN INDICATION
     Dosage: UNK
     Dates: start: 20180126
  2. KETOPROFENE MYLAN LP 100 MG, COMPRIM? S?CABLE ? LIB?RATION PROLONG?E [Suspect]
     Active Substance: KETOPROFEN
     Indication: BACK PAIN
     Dosage: 4 DF, BID (2 DF IN THE MORNING AND 2 DF IN THE EVENING.)
     Dates: start: 20180126
  3. CODOLIPRANE [Concomitant]
     Active Substance: ACETAMINOPHEN\CODEINE PHOSPHATE
     Indication: PRODUCT USED FOR UNKNOWN INDICATION
     Dosage: UNK
     Dates: start: 20180126

REACTIONS (3)
  - International normalised ratio increased [Unknown]
  - Diarrhoea [Recovered/Resolved]
  - Faeces discoloured [Recovered/Resolved]

NARRATIVE: CASE EVENT DATE: 20180128
